FAERS Safety Report 6964379-9 (Version None)
Quarter: 2010Q3

REPORT INFORMATION
  Report Type: 
  Country: None (occurrence: None)
  Receive Date: 20100903
  Receipt Date: 20100902
  Transmission Date: 20110219
  Serious: Yes (Other)
  Sender: FDA-Public Use
  Company Number: US-ASTRAZENECA-2007UW18785

PATIENT
  Age: 491 Month
  Sex: Male
  Weight: 108.9 kg

DRUGS (32)
  1. SEROQUEL [Suspect]
     Indication: BIPOLAR DISORDER
     Route: 048
     Dates: start: 20020801
  2. SEROQUEL [Suspect]
     Dosage: 25-800 MG
     Route: 048
     Dates: start: 20020902, end: 20100101
  3. RIBAVIRIN [Concomitant]
  4. LITHIUM CARBONATE [Concomitant]
  5. METFORMIN HCL [Concomitant]
  6. LISINOPRIL [Concomitant]
  7. TRICOR [Concomitant]
  8. NAPROXEN [Concomitant]
  9. DEPAKOTE [Concomitant]
  10. ALBUTEROL [Concomitant]
  11. ZYPREXA [Concomitant]
     Dates: start: 20051001
  12. IBUPROFEN [Concomitant]
  13. WELLBUTRIN [Concomitant]
  14. CELEXA [Concomitant]
  15. GLYBURIDE [Concomitant]
  16. ALTACE [Concomitant]
  17. ATIVAN [Concomitant]
  18. TRAMADOL HCL [Concomitant]
  19. CIALIS [Concomitant]
  20. NEXIUM [Concomitant]
  21. PRANDIN [Concomitant]
  22. SINGULAIR [Concomitant]
  23. PROZAC [Concomitant]
  24. LANTUS [Concomitant]
  25. HUMULIN 70/30 [Concomitant]
  26. PEPCID [Concomitant]
  27. LIBRIUM [Concomitant]
  28. ROBITUSSIN [Concomitant]
  29. RESTORIL [Concomitant]
  30. ACETAMINOPHEN [Concomitant]
  31. NARCAN [Concomitant]
  32. HALDOL [Concomitant]

REACTIONS (8)
  - DIABETES MELLITUS [None]
  - NEUROPATHY PERIPHERAL [None]
  - PANCREATITIS [None]
  - PARALYSIS [None]
  - ROAD TRAFFIC ACCIDENT [None]
  - SWELLING [None]
  - SYRINGOMYELIA [None]
  - TYPE 2 DIABETES MELLITUS [None]
